FAERS Safety Report 18729646 (Version 2)
Quarter: 2021Q3

REPORT INFORMATION
  Report Type: Spontaneous
  Country: US (occurrence: US)
  Receive Date: 20210112
  Receipt Date: 20210813
  Transmission Date: 20211014
  Serious: Yes (Other)
  Sender: FDA-Public Use
  Company Number: US-ASTRAZENECA-2020SF76044

PATIENT
  Age: 66 Year
  Sex: Female
  Weight: 100.7 kg

DRUGS (59)
  1. PRILOSEC OTC [Suspect]
     Active Substance: OMEPRAZOLE MAGNESIUM
     Indication: GASTROOESOPHAGEAL REFLUX DISEASE
     Route: 048
     Dates: start: 201405, end: 201405
  2. CELECOXIB. [Concomitant]
     Active Substance: CELECOXIB
     Indication: PAIN
     Route: 065
     Dates: start: 2003, end: 2004
  3. TRAMADOL. [Concomitant]
     Active Substance: TRAMADOL
     Indication: PAIN
     Route: 065
     Dates: start: 2002
  4. DALIRESP [Concomitant]
     Active Substance: ROFLUMILAST
  5. METRONIDAZOLE. [Concomitant]
     Active Substance: METRONIDAZOLE
  6. CLOTRIMAZOLE. [Concomitant]
     Active Substance: CLOTRIMAZOLE
  7. PRILOSEC [Suspect]
     Active Substance: OMEPRAZOLE MAGNESIUM
     Indication: GASTROOESOPHAGEAL REFLUX DISEASE
     Route: 048
     Dates: start: 2014, end: 2017
  8. PENICILLIN [Concomitant]
     Active Substance: PENICILLIN
  9. FLUCONAZOLE. [Concomitant]
     Active Substance: FLUCONAZOLE
  10. DIAZEPAM. [Concomitant]
     Active Substance: DIAZEPAM
  11. MOMETASONE [Concomitant]
     Active Substance: MOMETASONE
  12. NEXIUM [Suspect]
     Active Substance: ESOMEPRAZOLE MAGNESIUM
     Indication: GASTROOESOPHAGEAL REFLUX DISEASE
     Dosage: GENERIC
     Route: 065
     Dates: end: 2017
  13. PREVACID 24 HR [Suspect]
     Active Substance: LANSOPRAZOLE
     Indication: GASTROOESOPHAGEAL REFLUX DISEASE
     Route: 065
  14. LISINOPRIL. [Concomitant]
     Active Substance: LISINOPRIL
     Route: 065
     Dates: start: 2003, end: 2017
  15. LIDOCAINE. [Concomitant]
     Active Substance: LIDOCAINE
  16. SYNTHROID [Concomitant]
     Active Substance: LEVOTHYROXINE SODIUM
  17. FERROUS SULFATE. [Concomitant]
     Active Substance: FERROUS SULFATE
  18. GLYBURIDE. [Concomitant]
     Active Substance: GLYBURIDE
  19. ASPIRIN. [Concomitant]
     Active Substance: ASPIRIN
  20. NEXIUM 24HR [Suspect]
     Active Substance: ESOMEPRAZOLE MAGNESIUM
     Indication: GASTROOESOPHAGEAL REFLUX DISEASE
     Route: 048
  21. IBUPROFEN. [Concomitant]
     Active Substance: IBUPROFEN
     Indication: PAIN
  22. PREDNISONE. [Concomitant]
     Active Substance: PREDNISONE
  23. MONTELUKAST [Concomitant]
     Active Substance: MONTELUKAST SODIUM
  24. DARVOCET [Concomitant]
     Active Substance: ACETAMINOPHEN\PROPOXYPHENE HYDROCHLORIDE
  25. PRILOSEC OTC [Suspect]
     Active Substance: OMEPRAZOLE MAGNESIUM
     Indication: GASTROOESOPHAGEAL REFLUX DISEASE
     Route: 048
  26. FUROSEMIDE. [Concomitant]
     Active Substance: FUROSEMIDE
     Route: 065
     Dates: start: 2017
  27. AZITHROMYCIN ANHYDROUS. [Concomitant]
     Active Substance: AZITHROMYCIN ANHYDROUS
     Route: 065
     Dates: start: 2005
  28. BENZONATATE. [Concomitant]
     Active Substance: BENZONATATE
  29. DOCUSATE [Concomitant]
     Active Substance: DOCUSATE
  30. AVANDIA [Concomitant]
     Active Substance: ROSIGLITAZONE MALEATE
  31. NEXIUM [Suspect]
     Active Substance: ESOMEPRAZOLE MAGNESIUM
     Indication: GASTROOESOPHAGEAL REFLUX DISEASE
     Route: 048
     Dates: start: 201405, end: 201405
  32. AMOX?CLAV [Concomitant]
     Active Substance: AMOXICILLIN\CLAVULANATE POTASSIUM
  33. ALBUTEROL. [Concomitant]
     Active Substance: ALBUTEROL
  34. NOVOLOG [Concomitant]
     Active Substance: INSULIN ASPART
  35. TIOTROPIUM [Concomitant]
     Active Substance: TIOTROPIUM
  36. PRECISION [Concomitant]
  37. METHYLPREDNISOLONE. [Concomitant]
     Active Substance: METHYLPREDNISOLONE
  38. OXYCONTIN [Concomitant]
     Active Substance: OXYCODONE HYDROCHLORIDE
  39. GEMFIBROZIL. [Concomitant]
     Active Substance: GEMFIBROZIL
  40. NEXIUM [Suspect]
     Active Substance: ESOMEPRAZOLE MAGNESIUM
     Indication: GASTROOESOPHAGEAL REFLUX DISEASE
     Dosage: 20MG/40MG
     Route: 048
     Dates: start: 2002, end: 2017
  41. PRILOSEC [Suspect]
     Active Substance: OMEPRAZOLE MAGNESIUM
     Indication: GASTROOESOPHAGEAL REFLUX DISEASE
     Dosage: GENERIC
     Route: 065
  42. AMOXICILLIN. [Concomitant]
     Active Substance: AMOXICILLIN
     Indication: DENTAL OPERATION
     Route: 065
     Dates: start: 2014
  43. TOLTERODINE [Concomitant]
     Active Substance: TOLTERODINE
  44. OXYBUTYNIN. [Concomitant]
     Active Substance: OXYBUTYNIN CHLORIDE
  45. CYCLOBENZAPRINE. [Concomitant]
     Active Substance: CYCLOBENZAPRINE
  46. LATANOPROST. [Concomitant]
     Active Substance: LATANOPROST
  47. THEOPHYLLINE [Concomitant]
     Active Substance: THEOPHYLLINE ANHYDROUS
  48. AMITRIPTYLINE [Concomitant]
     Active Substance: AMITRIPTYLINE
  49. PRILOSEC [Suspect]
     Active Substance: OMEPRAZOLE MAGNESIUM
     Indication: GASTROOESOPHAGEAL REFLUX DISEASE
     Route: 048
     Dates: start: 201405, end: 201405
  50. RANITIDINE. [Concomitant]
     Active Substance: RANITIDINE
     Route: 065
     Dates: start: 2002, end: 2008
  51. TUMS [Concomitant]
     Active Substance: CALCIUM CARBONATE
     Route: 065
     Dates: start: 1982, end: 2002
  52. PHENAZOPYRIDINE. [Concomitant]
     Active Substance: PHENAZOPYRIDINE
  53. MOVANTIK [Concomitant]
     Active Substance: NALOXEGOL OXALATE
  54. LYRICA [Concomitant]
     Active Substance: PREGABALIN
  55. SENSIPAR [Concomitant]
     Active Substance: CINACALCET HYDROCHLORIDE
  56. HYDROCODONE [Concomitant]
     Active Substance: HYDROCODONE
  57. DETROL [Concomitant]
     Active Substance: TOLTERODINE TARTRATE
  58. SERTRALINE [Concomitant]
     Active Substance: SERTRALINE HYDROCHLORIDE
  59. GLIPIZIDE. [Concomitant]
     Active Substance: GLIPIZIDE

REACTIONS (6)
  - Acute kidney injury [Unknown]
  - Renal injury [Unknown]
  - Tubulointerstitial nephritis [Unknown]
  - Renal failure [Unknown]
  - Chronic kidney disease [Not Recovered/Not Resolved]
  - Gastrooesophageal reflux disease [Not Recovered/Not Resolved]

NARRATIVE: CASE EVENT DATE: 2016
